FAERS Safety Report 15953293 (Version 2)
Quarter: 2024Q2

REPORT INFORMATION
  Report Type: Spontaneous
  Country: HK (occurrence: HK)
  Receive Date: 20190211
  Receipt Date: 20240417
  Transmission Date: 20240716
  Serious: Yes (Life-Threatening, Hospitalization, Other)
  Sender: FDA-Public Use
  Company Number: None

PATIENT
  Age: 65 Year
  Sex: Female

DRUGS (6)
  1. MYCOPHENOLATE MOFETIL [Interacting]
     Active Substance: MYCOPHENOLATE MOFETIL
     Indication: Liver transplant
     Dosage: 180 MG, EVERY 12 HRS
     Route: 065
  2. MYCOPHENOLATE MOFETIL [Interacting]
     Active Substance: MYCOPHENOLATE MOFETIL
     Indication: Immunosuppressant drug therapy
  3. TACROLIMUS [Interacting]
     Active Substance: TACROLIMUS
     Indication: Liver transplant
     Dosage: 1 MG, EVERY 12 HRS
     Route: 048
  4. TACROLIMUS [Interacting]
     Active Substance: TACROLIMUS
     Indication: Immunosuppressant drug therapy
  5. PREDNISOLONE [Interacting]
     Active Substance: PREDNISOLONE
     Indication: Liver transplant
     Dosage: 10 MG, EVERY 12 HRS PROLONGED USE OF PREDNISOLONE
     Route: 048
  6. PREDNISOLONE [Interacting]
     Active Substance: PREDNISOLONE
     Indication: Immunosuppressant drug therapy
     Dosage: 5 MILLIGRAM, QD PROLONGED USE OF PREDNISOLONE
     Route: 048

REACTIONS (13)
  - Pneumomediastinum [Recovered/Resolved]
  - Subcutaneous emphysema [Recovered/Resolved]
  - Drug interaction [Recovered/Resolved]
  - Pneumothorax spontaneous [Recovered/Resolved]
  - Pneumocystis jirovecii pneumonia [Recovered/Resolved]
  - Respiratory syncytial virus infection [Recovered/Resolved]
  - Rhinovirus infection [Recovered/Resolved]
  - Cytomegalovirus infection [Recovered/Resolved]
  - Enterovirus infection [Recovered/Resolved]
  - Candida infection [Recovered/Resolved]
  - Pyrexia [Recovered/Resolved]
  - Dyspnoea [Recovered/Resolved]
  - Cough [Recovered/Resolved]
